FAERS Safety Report 5861685-6 (Version None)
Quarter: 2008Q3

REPORT INFORMATION
  Report Type: 
  Country: None (occurrence: None)
  Receive Date: 20080827
  Receipt Date: 20080622
  Transmission Date: 20090109
  Serious: No
  Sender: FDA-Public Use
  Company Number: US-ABBOTT-08P-163-0458948-00

PATIENT
  Sex: Male

DRUGS (2)
  1. NIASPAN [Suspect]
     Indication: BLOOD CHOLESTEROL INCREASED
     Dosage: 500MG AT BEDTIME
     Route: 048
     Dates: start: 20080501
  2. NIASPAN [Suspect]

REACTIONS (3)
  - BURNING SENSATION [None]
  - NASOPHARYNGITIS [None]
  - PARAESTHESIA [None]
